FAERS Safety Report 13746603 (Version 3)
Quarter: 2023Q4

REPORT INFORMATION
  Report Type: Report from Study
  Country: DE (occurrence: DE)
  Receive Date: 20170712
  Receipt Date: 20231122
  Transmission Date: 20240110
  Serious: Yes (Hospitalization)
  Sender: FDA-Public Use
  Company Number: DE-TAKEDA-2017MPI005981

PATIENT
  Sex: Female

DRUGS (9)
  1. BRENTUXIMAB VEDOTIN [Suspect]
     Active Substance: BRENTUXIMAB VEDOTIN
     Indication: Hodgkin^s disease
     Dosage: 1.8 MG/KG, UNK
     Route: 065
     Dates: start: 20170626, end: 20170626
  2. DEXAMETHASONE [Suspect]
     Active Substance: DEXAMETHASONE
     Indication: Hodgkin^s disease
     Dosage: 40 MILLIGRAM/SQ. METER
     Route: 065
     Dates: start: 20170627, end: 20170630
  3. DOXORUBICIN [Suspect]
     Active Substance: DOXORUBICIN
     Indication: Hodgkin^s disease
     Dosage: 40 MG/M2, UNK
     Route: 065
     Dates: start: 20170627, end: 20170627
  4. CYCLOPHOSPHAMIDE [Suspect]
     Active Substance: CYCLOPHOSPHAMIDE
     Indication: Hodgkin^s disease
     Dosage: 1100 MILLIGRAM/SQ. METER
     Route: 065
     Dates: start: 20170627, end: 20170627
  5. DACARBAZINE [Suspect]
     Active Substance: DACARBAZINE
     Indication: Hodgkin^s disease
     Dosage: 250 MILLIGRAM/SQ. METER
     Route: 065
     Dates: start: 20170628, end: 20170629
  6. ETOPOSIDE [Suspect]
     Active Substance: ETOPOSIDE
     Indication: Hodgkin^s disease
     Dosage: 125 MILLIGRAM
     Route: 065
     Dates: start: 20170627, end: 20170629
  7. CIPROFLOXACIN [Concomitant]
     Active Substance: CIPROFLOXACIN
     Dosage: 1000 MG, UNK
     Route: 065
     Dates: start: 20170701, end: 20170706
  8. PIPERACILLIN SODIUM\TAZOBACTAM SODIUM [Concomitant]
     Active Substance: PIPERACILLIN SODIUM\TAZOBACTAM SODIUM
     Dosage: UNK
     Route: 065
     Dates: start: 20170706, end: 20170707
  9. SULFAMETHOXAZOLE\TRIMETHOPRIM [Concomitant]
     Active Substance: SULFAMETHOXAZOLE\TRIMETHOPRIM
     Dosage: 960 MG, UNK
     Route: 065
     Dates: start: 20170701, end: 20170706

REACTIONS (2)
  - Tachycardia [Recovered/Resolved]
  - Pancytopenia [Recovered/Resolved]

NARRATIVE: CASE EVENT DATE: 20170705
